FAERS Safety Report 4888506-2 (Version None)
Quarter: 2005Q4

REPORT INFORMATION
  Report Type: 
  Country: None (occurrence: None)
  Receive Date: 20051215
  Receipt Date: 20050525
  Transmission Date: 20060501
  Serious: No
  Sender: FDA-Public Use
  Company Number: 2005080206

PATIENT
  Age: 83 Year
  Sex: Female
  Weight: 97.977 kg

DRUGS (3)
  1. BEXTRA [Suspect]
     Indication: ARTHRITIS
     Dosage: 10 MG (10 MG, 1 IN 1 D), ORAL
     Route: 048
     Dates: start: 20030101, end: 20040101
  2. HYTRIN [Concomitant]
  3. LIPITOR [Concomitant]

REACTIONS (2)
  - ACNE [None]
  - ANGINA PECTORIS [None]
